FAERS Safety Report 7769863-6 (Version None)
Quarter: 2011Q3

REPORT INFORMATION
  Report Type: 
  Country: None (occurrence: None)
  Receive Date: 20110922
  Receipt Date: 20100810
  Transmission Date: 20111222
  Serious: No
  Sender: FDA-Public Use
  Company Number: US-ASTRAZENECA-2010SE37490

PATIENT
  Age: 46 Year
  Sex: Male
  Weight: 90.7 kg

DRUGS (5)
  1. SEROQUEL [Suspect]
     Indication: DEPRESSION
     Route: 048
  2. SEROQUEL [Suspect]
     Route: 048
     Dates: start: 20100101
  3. LEXAPRO [Concomitant]
  4. NEXIUM [Concomitant]
  5. SEROQUEL [Suspect]
     Route: 048
     Dates: start: 20100809

REACTIONS (3)
  - INSOMNIA [None]
  - SOMNOLENCE [None]
  - FEELING ABNORMAL [None]
